FAERS Safety Report 6317258-4 (Version None)
Quarter: 2009Q3

REPORT INFORMATION
  Report Type: 
  Country: None (occurrence: None)
  Receive Date: 20090819
  Receipt Date: 20090811
  Transmission Date: 20100115
  Serious: Yes (Other)
  Sender: FDA-Public Use
  Company Number: 351063

PATIENT
  Age: 30 Year
  Sex: Female
  Weight: 88 kg

DRUGS (10)
  1. MANNITOL HEXANITRATE [Suspect]
     Indication: DRUG USE FOR UNKNOWN INDICATION
     Dosage: INTRAVENOUS
     Route: 042
  2. POTASSIUM PHOSPHATES [Suspect]
     Indication: HYPOPHOSPHATAEMIA
     Dosage: 120 MMOL; INTRAVENOUS
     Route: 042
  3. PHOSPORUS [Suspect]
     Indication: HYPOPHOSPHATAEMIA
     Dosage: INTRAVENOUS DRIP
     Route: 041
  4. INSULIN [Concomitant]
  5. MORPHINE [Concomitant]
  6. VANCOMYCIN [Concomitant]
  7. PARENTERAL [Concomitant]
  8. DOPAMINE HCL [Concomitant]
  9. CEFTRIAXONE [Concomitant]
  10. ONDANSETRON [Concomitant]

REACTIONS (5)
  - BRAIN DEATH [None]
  - BRAIN OEDEMA [None]
  - HYPOTENSION [None]
  - ISCHAEMIC CEREBRAL INFARCTION [None]
  - NEPHROPATHY [None]
